FAERS Safety Report 12664023 (Version 1)
Quarter: 2016Q3

REPORT INFORMATION
  Report Type: Spontaneous
  Country: US (occurrence: US)
  Receive Date: 20160818
  Receipt Date: 20160818
  Transmission Date: 20161109
  Serious: No
  Sender: FDA-Public Use
  Company Number: US-RARE DISEASE THERAPEUTICS, INC.-1056473

PATIENT
  Age: 14 Year
  Sex: Male
  Weight: 36.29 kg

DRUGS (6)
  1. CYTRA-2 [Concomitant]
     Active Substance: CITRIC ACID MONOHYDRATE\TRISODIUM CITRATE DIHYDRATE
  2. CARNITOR [Concomitant]
     Active Substance: LEVOCARNITINE
  3. MULTIVITAMIN [Concomitant]
     Active Substance: VITAMINS
  4. CYSTADANE [Suspect]
     Active Substance: BETAINE
     Indication: AMINO ACID LEVEL INCREASED
     Dates: start: 20140730
  5. VITAMIN B12 [Concomitant]
     Active Substance: CYANOCOBALAMIN
  6. LEUCOVORIN. [Concomitant]
     Active Substance: LEUCOVORIN

REACTIONS (4)
  - Hypersensitivity [Recovering/Resolving]
  - Nasopharyngitis [Recovering/Resolving]
  - Overdose [None]
  - Off label use [Unknown]

NARRATIVE: CASE EVENT DATE: 20140730
